FAERS Safety Report 18359278 (Version 1)
Quarter: 2020Q4

REPORT INFORMATION
  Report Type: Spontaneous
  Country: US (occurrence: US)
  Receive Date: 20201002
  Receipt Date: 20201002
  Transmission Date: 20210114
  Serious: Yes (Death)
  Sender: FDA-Public Use
  Company Number: None

PATIENT
  Age: 7 Decade
  Sex: Female

DRUGS (2)
  1. AZITHROMYCIN ANHYDROUS. [Suspect]
     Active Substance: AZITHROMYCIN ANHYDROUS
     Indication: COVID-19
     Dosage: ?          OTHER ROUTE:IV?
     Dates: start: 2020
  2. HYDROXYCHLOROQUINE [Suspect]
     Active Substance: HYDROXYCHLOROQUINE

REACTIONS (9)
  - Electrocardiogram T wave amplitude increased [None]
  - Respiratory failure [None]
  - Multiple organ dysfunction syndrome [None]
  - Torsade de pointes [None]
  - Electrocardiogram T wave abnormal [None]
  - Off label use [None]
  - Electrocardiogram QT prolonged [None]
  - Metabolic acidosis [None]
  - Blood magnesium increased [None]
